FAERS Safety Report 4433930-5 (Version None)
Quarter: 2004Q3

REPORT INFORMATION
  Report Type: 
  Country: None (occurrence: None)
  Receive Date: 20040825
  Receipt Date: 20040818
  Transmission Date: 20050211
  Serious: Yes (Hospitalization)
  Sender: FDA-Public Use
  Company Number: NLWYE988219AUG04

PATIENT
  Sex: Male

DRUGS (2)
  1. RAPAMUNE [Suspect]
     Indication: NEOPLASM SKIN
     Dosage: ORAL
     Route: 048
     Dates: start: 20040601
  2. RAPAMUNE [Suspect]
     Indication: RENAL TRANSPLANT
     Dosage: ORAL
     Route: 048
     Dates: start: 20040601

REACTIONS (4)
  - BLOOD CREATININE INCREASED [None]
  - CONDITION AGGRAVATED [None]
  - KIDNEY TRANSPLANT REJECTION [None]
  - PROTEINURIA [None]
